FAERS Safety Report 9827110 (Version 1)
Quarter: 2014Q1

REPORT INFORMATION
  Report Type: Spontaneous
  Country: FR (occurrence: FR)
  Receive Date: 20140117
  Receipt Date: 20140117
  Transmission Date: 20141002
  Serious: Yes (Hospitalization)
  Sender: FDA-Public Use
  Company Number: FR-ABBVIE-14P-056-1191424-00

PATIENT
  Age: 72 Year
  Sex: Female

DRUGS (2)
  1. LIPANTHYL [Suspect]
     Indication: MYOCARDIAL INFARCTION
     Route: 048
     Dates: start: 201105
  2. KARDEGIC [Suspect]
     Indication: MYOCARDIAL INFARCTION
     Route: 048
     Dates: start: 201105, end: 20131203

REACTIONS (1)
  - Pruritus [Not Recovered/Not Resolved]
